FAERS Safety Report 7623501-1 (Version None)
Quarter: 2011Q3

REPORT INFORMATION
  Report Type: 
  Country: None (occurrence: None)
  Receive Date: 20110720
  Receipt Date: 20110705
  Transmission Date: 20111222
  Serious: Yes (Hospitalization)
  Sender: FDA-Public Use
  Company Number: RO-SANOFI-AVENTIS-2011SA044465

PATIENT
  Age: 81 Year
  Sex: Female
  Weight: 74 kg

DRUGS (4)
  1. PERINDOPRIL ERBUMINE [Concomitant]
  2. AMLODIPINE [Concomitant]
  3. ACENOCOUMAROL [Concomitant]
     Dosage: 14MG WEEKLY
  4. DRONEDARONE HCL [Suspect]
     Indication: ATRIAL FIBRILLATION
     Route: 048
     Dates: start: 20110218

REACTIONS (3)
  - CONJUNCTIVAL HAEMORRHAGE [None]
  - EPILEPSY [None]
  - HAEMATURIA [None]
